FAERS Safety Report 9676310 (Version 4)
Quarter: 2014Q1

REPORT INFORMATION
  Report Type: Spontaneous
  Country: US (occurrence: US)
  Receive Date: 20131107
  Receipt Date: 20140102
  Transmission Date: 20141002
  Serious: Yes (Death, Other)
  Sender: FDA-Public Use
  Company Number: US-CELGENEUS-163-POMAL-13110485

PATIENT
  Age: 73 Year
  Sex: Male

DRUGS (6)
  1. POMALYST [Suspect]
     Indication: PLASMA CELL MYELOMA
     Dosage: 4 MILLIGRAM
     Route: 048
     Dates: start: 20131022, end: 20131026
  2. COUMADIN [Suspect]
     Indication: PULMONARY EMBOLISM
     Route: 065
     Dates: start: 201209, end: 201309
  3. ZOMETA [Concomitant]
     Indication: PRODUCT USED FOR UNKNOWN INDICATION
     Dosage: 4 MILLIGRAM
     Route: 041
     Dates: start: 201208, end: 201209
  4. MORPHINE [Concomitant]
     Indication: FRACTURE
     Route: 048
     Dates: start: 201208, end: 201310
  5. VELCADE [Concomitant]
     Indication: PLASMA CELL MYELOMA
     Dosage: .1429 MILLIGRAM/SQ. METER
     Route: 058
     Dates: start: 201208, end: 201309
  6. DEXAMETHASONE [Concomitant]
     Indication: PLASMA CELL MYELOMA
     Dosage: 5.7143 MILLIGRAM
     Route: 048
     Dates: start: 201309, end: 201310

REACTIONS (4)
  - Plasma cell leukaemia [Fatal]
  - Subdural haemorrhage [Not Recovered/Not Resolved]
  - Subarachnoid haemorrhage [Not Recovered/Not Resolved]
  - Platelet count decreased [Unknown]
